FAERS Safety Report 22389047 (Version 1)
Quarter: 2023Q2

REPORT INFORMATION
  Report Type: Spontaneous
  Country: US (occurrence: US)
  Receive Date: 20230531
  Receipt Date: 20230531
  Transmission Date: 20230721
  Serious: No
  Sender: FDA-Public Use
  Company Number: US-MYCOVIA PHARMACEUTICALS, INC.-MY-2022-000029

PATIENT
  Age: 74 Year
  Sex: Female

DRUGS (7)
  1. VIVJOA [Suspect]
     Active Substance: OTESECONAZOLE
     Indication: Vulvovaginal candidiasis
     Dosage: 600 MILLIGRAM (4 CAPSULES)
     Route: 048
     Dates: start: 20221003, end: 20221003
  2. VIVJOA [Suspect]
     Active Substance: OTESECONAZOLE
     Dosage: 450 MILLIGRAM (3 CAPSULES ON DAY 2)
     Route: 048
  3. VIVJOA [Suspect]
     Active Substance: OTESECONAZOLE
     Dosage: 150 MILLIGRAM, QWK (STARTING FROM DAY 14)
     Route: 048
  4. VIVJOA [Suspect]
     Active Substance: OTESECONAZOLE
     Dosage: 150 MILLIGRAM, QWK
     Route: 048
     Dates: start: 20221030, end: 20221030
  5. VIVJOA [Suspect]
     Active Substance: OTESECONAZOLE
     Dosage: 150 MILLIGRAM, QWK
     Route: 048
     Dates: start: 20221031, end: 20221031
  6. PROPRANOLOL [Concomitant]
     Active Substance: PROPRANOLOL HYDROCHLORIDE
     Indication: Product used for unknown indication
     Route: 065
  7. METHYCLOTHIAZIDE [Concomitant]
     Active Substance: METHYCLOTHIAZIDE
     Indication: Product used for unknown indication
     Route: 065

REACTIONS (2)
  - Product dose omission issue [Recovered/Resolved]
  - Inappropriate schedule of product administration [Recovered/Resolved]

NARRATIVE: CASE EVENT DATE: 20221024
